FAERS Safety Report 12485698 (Version 1)
Quarter: 2016Q2

REPORT INFORMATION
  Report Type: Spontaneous
  Country: ZA (occurrence: ZA)
  Receive Date: 20160621
  Receipt Date: 20160621
  Transmission Date: 20160815
  Serious: Yes (Other)
  Sender: FDA-Public Use
  Company Number: ZA-JNJFOC-20160615052

PATIENT
  Sex: Male

DRUGS (1)
  1. RISPERDAL CONSTA [Suspect]
     Active Substance: RISPERIDONE
     Indication: PRODUCT USED FOR UNKNOWN INDICATION
     Route: 065

REACTIONS (14)
  - Temperature intolerance [Unknown]
  - Skin papilloma [Unknown]
  - Psoriasis [Unknown]
  - Liver injury [Unknown]
  - Hypoacusis [Unknown]
  - Mood swings [Unknown]
  - Gynaecomastia [Unknown]
  - Tardive dyskinesia [Unknown]
  - Rash [Unknown]
  - Amnesia [Unknown]
  - Muscle spasms [Unknown]
  - Dyspnoea [Unknown]
  - Alopecia [Unknown]
  - Dysarthria [Unknown]
